FAERS Safety Report 11204249 (Version 1)
Quarter: 2015Q2

REPORT INFORMATION
  Report Type: Spontaneous
  Country: DE (occurrence: DE)
  Receive Date: 20150620
  Receipt Date: 20150620
  Transmission Date: 20150821
  Serious: Yes (Other)
  Sender: FDA-Public Use
  Company Number: DE-AUROBINDO-AUR-APL-2015-05223

PATIENT
  Age: 60 Year
  Sex: Male
  Weight: 78 kg

DRUGS (1)
  1. CARVEDILOL  6.25 MG [Suspect]
     Active Substance: CARVEDILOL
     Indication: PORTAL VEIN PRESSURE INCREASED
     Dosage: 6.25 MG, TWO TIMES A DAY
     Route: 048
     Dates: start: 201408, end: 201505

REACTIONS (7)
  - Arrhythmia [Unknown]
  - Rash [Recovered/Resolved]
  - Limb discomfort [Unknown]
  - Oedema peripheral [Unknown]
  - Sleep disorder [Unknown]
  - Arthralgia [Unknown]
  - Blood pressure decreased [Unknown]

NARRATIVE: CASE EVENT DATE: 2014
